FAERS Safety Report 7959617-X (Version None)
Quarter: 2011Q4

REPORT INFORMATION
  Report Type: 
  Country: None (occurrence: None)
  Receive Date: 20111206
  Receipt Date: 20111129
  Transmission Date: 20120403
  Serious: Yes (Other)
  Sender: FDA-Public Use
  Company Number: US-JNJFOC-20111200063

PATIENT
  Sex: Male
  Weight: 158.76 kg

DRUGS (5)
  1. MORPHINE [Concomitant]
     Indication: PAIN
     Route: 042
     Dates: start: 20111110, end: 20111119
  2. LYRICA [Concomitant]
     Indication: PAIN
     Route: 048
     Dates: start: 20111110, end: 20111119
  3. INSULIN [Concomitant]
     Indication: DIABETES MELLITUS
     Route: 058
     Dates: start: 20111110, end: 20111126
  4. FENTANYL-100 [Suspect]
     Indication: PAIN
     Route: 062
     Dates: start: 20111110, end: 20111101
  5. PHENOBARBITAL TAB [Concomitant]
     Indication: CONVULSION PROPHYLAXIS
     Dosage: 9 OF 30 MG
     Route: 048
     Dates: start: 20000101

REACTIONS (5)
  - INTENTIONAL DRUG MISUSE [None]
  - OVERDOSE [None]
  - HALLUCINATION [None]
  - CHEST PAIN [None]
  - WRONG TECHNIQUE IN DRUG USAGE PROCESS [None]
